FAERS Safety Report 11092631 (Version 1)
Quarter: 2015Q2

REPORT INFORMATION
  Report Type: Spontaneous
  Country: US (occurrence: None)
  Receive Date: 20150505
  Receipt Date: 20150505
  Transmission Date: 20150821
  Serious: No
  Sender: FDA-Public Use
  Company Number: None

PATIENT
  Age: 63 Year
  Sex: Female

DRUGS (1)
  1. HARVONI [Suspect]
     Active Substance: LEDIPASVIR\SOFOSBUVIR
     Indication: HEPATITIS
     Dosage: 1,000, DAILY, PO
     Route: 048
     Dates: start: 20150328

REACTIONS (2)
  - Headache [None]
  - Dyspnoea [None]

NARRATIVE: CASE EVENT DATE: 20150328
